FAERS Safety Report 8003991-5 (Version None)
Quarter: 2011Q4

REPORT INFORMATION
  Report Type: 
  Country: None (occurrence: None)
  Receive Date: 20111222
  Receipt Date: 20111208
  Transmission Date: 20120403
  Serious: Yes (Hospitalization, Other)
  Sender: FDA-Public Use
  Company Number: US-AMGEN-USASP2011065350

PATIENT
  Age: 80 Year
  Sex: Male

DRUGS (3)
  1. ARANESP [Suspect]
     Indication: RENAL DISORDER
     Dosage: UNK
  2. LOSARTAN POTASSIUM [Concomitant]
  3. LISINOPRIL [Concomitant]

REACTIONS (7)
  - RENAL DISORDER [None]
  - MENTAL IMPAIRMENT [None]
  - RESPIRATION ABNORMAL [None]
  - BLOOD POTASSIUM INCREASED [None]
  - BLOOD PRESSURE INCREASED [None]
  - SLEEP DISORDER [None]
  - OEDEMA PERIPHERAL [None]
